FAERS Safety Report 11281180 (Version 1)
Quarter: 2015Q3

REPORT INFORMATION
  Report Type: Spontaneous
  Country: JP (occurrence: JP)
  Receive Date: 20150717
  Receipt Date: 20150717
  Transmission Date: 20151125
  Serious: Yes (Other)
  Sender: FDA-Public Use
  Company Number: JP-GLAXOSMITHKLINE-JP2015JPN100013

PATIENT
  Age: 62 Year
  Sex: Male

DRUGS (4)
  1. LIMAS [Concomitant]
     Active Substance: LITHIUM CARBONATE
     Route: 048
  2. MYSLEE [Concomitant]
     Active Substance: ZOLPIDEM TARTRATE
     Route: 048
  3. DEPAS [Concomitant]
     Active Substance: ETIZOLAM
     Route: 048
  4. LAMICTAL [Suspect]
     Active Substance: LAMOTRIGINE
     Route: 048

REACTIONS (7)
  - Locked-in syndrome [Unknown]
  - Disorientation [Unknown]
  - White matter lesion [Unknown]
  - Shock symptom [Unknown]
  - Amnesia [Unknown]
  - Hypoxic-ischaemic encephalopathy [Unknown]
  - Depressed level of consciousness [Unknown]
